FAERS Safety Report 5485040-6 (Version None)
Quarter: 2007Q4

REPORT INFORMATION
  Report Type: 
  Country: None (occurrence: None)
  Receive Date: 20071015
  Receipt Date: 20071005
  Transmission Date: 20080405
  Serious: Yes (Hospitalization, Other)
  Sender: FDA-Public Use
  Company Number: PHBS2007IT16629

PATIENT
  Age: 72 Year
  Sex: Male

DRUGS (4)
  1. AREDIA [Suspect]
     Indication: MULTIPLE MYELOMA
     Dosage: 90 MG, UNK
     Route: 042
     Dates: start: 20020901, end: 20021230
  2. ZOMETA [Suspect]
     Dosage: 4 MG, UNK
     Route: 042
     Dates: start: 20030102, end: 20070102
  3. THALIDOMIDE [Concomitant]
  4. DEXAMETHASONE 0.5MG TAB [Concomitant]

REACTIONS (3)
  - HYPERBARIC OXYGEN THERAPY [None]
  - OSTEONECROSIS [None]
  - SINUS DISORDER [None]
